FAERS Safety Report 16557619 (Version 1)
Quarter: 2019Q3

REPORT INFORMATION
  Report Type: Spontaneous
  Country: US (occurrence: US)
  Receive Date: 20190711
  Receipt Date: 20190711
  Transmission Date: 20191004
  Serious: No
  Sender: FDA-Public Use
  Company Number: US-ACLARIS THERAPEUTICS-2019US003583

PATIENT
  Age: 28 Year
  Sex: Female

DRUGS (1)
  1. ESKATA [Suspect]
     Active Substance: HYDROGEN PEROXIDE
     Indication: PRODUCT USED FOR UNKNOWN INDICATION
     Dosage: UNK
     Route: 061
     Dates: start: 201812

REACTIONS (6)
  - Application site discolouration [Unknown]
  - Application site scar [Unknown]
  - Impaired healing [Unknown]
  - Application site erythema [Unknown]
  - Application site discharge [Unknown]
  - Infection [Unknown]
